FAERS Safety Report 12716255 (Version 1)
Quarter: 2016Q3

REPORT INFORMATION
  Report Type: Spontaneous
  Country: US (occurrence: US)
  Receive Date: 20160906
  Receipt Date: 20160906
  Transmission Date: 20161109
  Serious: Yes (Other)
  Sender: FDA-Public Use
  Company Number: None

PATIENT
  Age: 21 Year
  Sex: Male
  Weight: 72 kg

DRUGS (1)
  1. ICY HOT MEDICATED NO MESS APPLICATOR [Suspect]
     Active Substance: MENTHOL
     Indication: MYALGIA
     Route: 061
     Dates: start: 20160901, end: 20160901

REACTIONS (4)
  - Burning sensation [None]
  - Chemical injury [None]
  - Blister [None]
  - Generalised erythema [None]

NARRATIVE: CASE EVENT DATE: 20160901
